FAERS Safety Report 7018645-1 (Version None)
Quarter: 2010Q3

REPORT INFORMATION
  Report Type: 
  Country: None (occurrence: None)
  Receive Date: 20100924
  Receipt Date: 20100910
  Transmission Date: 20110219
  Serious: Yes (Other)
  Sender: FDA-Public Use
  Company Number: 2010AP001960

PATIENT
  Age: 60 Year
  Sex: Female

DRUGS (3)
  1. PERINDOPRIL ERBUMINE [Suspect]
     Indication: HYPERTENSION
     Dosage: 4 MG; PO
     Route: 048
  2. VITAMIN D AND ANALOGUES (VITAMIN D AND ANALOGUES) [Concomitant]
  3. FELODIPINE [Concomitant]

REACTIONS (3)
  - ANOSMIA [None]
  - EYE PAIN [None]
  - FEELING HOT [None]
